FAERS Safety Report 4981136-3 (Version None)
Quarter: 2006Q2

REPORT INFORMATION
  Report Type: 
  Country: None (occurrence: None)
  Receive Date: 20060418
  Receipt Date: 20060405
  Transmission Date: 20061013
  Serious: Yes (Hospitalization)
  Sender: FDA-Public Use
  Company Number: 06H-163-0307286-00

PATIENT
  Age: 20 Year
  Sex: Male
  Weight: 58.514 kg

DRUGS (23)
  1. MEPERIDINE HCL [Suspect]
     Indication: RENAL PAIN
     Dosage: 150 MG, PRN, INTRAMUSCULAR
     Route: 030
     Dates: start: 20050707
  2. FENTANYL [Suspect]
     Indication: RENAL PAIN
     Dosage: SEE IMAGE
     Dates: start: 20050628, end: 20050629
  3. FENTANYL [Suspect]
     Indication: RENAL PAIN
     Dosage: SEE IMAGE
     Dates: start: 20050629, end: 20050630
  4. FENTANYL [Suspect]
     Indication: RENAL PAIN
     Dosage: SEE IMAGE
     Dates: start: 20050630, end: 20050705
  5. FENTANYL [Suspect]
     Indication: RENAL PAIN
     Dosage: SEE IMAGE
     Dates: start: 20050706, end: 20050708
  6. FENTANYL [Suspect]
     Indication: RENAL PAIN
     Dosage: SEE IMAGE
     Dates: start: 20050708, end: 20050712
  7. FENTANYL [Suspect]
     Indication: RENAL PAIN
     Dosage: SEE IMAGE
     Dates: start: 20050712, end: 20050815
  8. FENTANYL [Suspect]
     Indication: RENAL PAIN
     Dosage: SEE IMAGE
     Dates: start: 20050816, end: 20050818
  9. FENTANYL [Suspect]
     Indication: RENAL PAIN
     Dosage: SEE IMAGE
     Dates: start: 20050818, end: 20050822
  10. FENTANYL [Suspect]
     Indication: RENAL PAIN
     Dosage: SEE IMAGE
     Dates: start: 20050822, end: 20050824
  11. FENTANYL [Suspect]
     Indication: RENAL PAIN
     Dosage: SEE IMAGE
     Dates: start: 20050824, end: 20050915
  12. FENTANYL [Suspect]
     Indication: RENAL PAIN
     Dosage: SEE IMAGE
     Dates: start: 20050915, end: 20050922
  13. FENTANYL [Suspect]
     Indication: RENAL PAIN
     Dosage: SEE IMAGE
     Dates: start: 20050629
  14. FENTANYL [Suspect]
     Indication: RENAL PAIN
     Dosage: SEE IMAGE
     Dates: start: 20050922
  15. MORPHINE [Suspect]
     Indication: RENAL PAIN
     Dosage: 20 MG, PRN, INTRAMUSCULAR
     Route: 030
     Dates: start: 20050822
  16. OXYCODONE (OXYCODONE) [Suspect]
     Indication: RENAL PAIN
     Dosage: 60 MG, EVERYDAY; ORAL
     Route: 048
     Dates: start: 20050607
  17. HYDROMORPHONE HCL [Suspect]
     Indication: DRUG USE FOR UNKNOWN INDICATION
     Dosage: 8 MG, PRN, ORAL
     Route: 048
     Dates: start: 20050624, end: 20050929
  18. MARINOL [Suspect]
     Indication: ANOREXIA
     Dosage: 5 MG, EVERYDAY; ORAL
     Route: 048
     Dates: start: 20050601
  19. PROMETHAZINE HCL [Concomitant]
  20. UROCIT K (POTASSIUM CITRATE) [Concomitant]
  21. DIAZEPAM [Concomitant]
  22. CARISOPRODOL [Concomitant]
  23. CEP-25608 [Concomitant]

REACTIONS (1)
  - CONVULSION [None]
